FAERS Safety Report 7305438-0 (Version None)
Quarter: 2011Q1

REPORT INFORMATION
  Report Type: 
  Country: None (occurrence: None)
  Receive Date: 20110222
  Receipt Date: 20110216
  Transmission Date: 20110831
  Serious: Yes (Hospitalization, Other)
  Sender: FDA-Public Use
  Company Number: US-PFIZER INC-2010152263

PATIENT
  Sex: Female
  Weight: 72.5 kg

DRUGS (6)
  1. TRAZODONE [Concomitant]
  2. XANAX [Concomitant]
  3. LISDEXAMFETAMINE [Suspect]
  4. LAMICTAL [Concomitant]
  5. EFFEXOR XR [Suspect]
     Indication: MAJOR DEPRESSION
     Dosage: 150 MG, 2X/DAY
     Route: 048
  6. EFFEXOR XR [Suspect]
     Indication: BIPOLAR DISORDER

REACTIONS (10)
  - DRUG WITHDRAWAL SYNDROME [None]
  - TREATMENT NONCOMPLIANCE [None]
  - TIC [None]
  - HALLUCINATIONS, MIXED [None]
  - PSYCHOTIC DISORDER [None]
  - WITHDRAWAL SYNDROME [None]
  - TARDIVE DYSKINESIA [None]
  - HALLUCINATION [None]
  - MENTAL DISORDER [None]
  - NERVOUSNESS [None]
